FAERS Safety Report 23467387 (Version 1)
Quarter: 2024Q1

REPORT INFORMATION
  Report Type: Spontaneous
  Country: KR (occurrence: KR)
  Receive Date: 20240201
  Receipt Date: 20240201
  Transmission Date: 20240410
  Serious: Yes (Death, Other)
  Sender: FDA-Public Use
  Company Number: KR-ASTELLAS-2024US003122

PATIENT
  Age: 81 Year
  Sex: Male

DRUGS (1)
  1. PADCEV [Suspect]
     Active Substance: ENFORTUMAB VEDOTIN-EJFV
     Indication: Transitional cell carcinoma metastatic
     Dosage: 60 ML, CYCLIC (CYCLE 1)
     Route: 065
     Dates: start: 20231201

REACTIONS (1)
  - Death [Fatal]
